FAERS Safety Report 11582747 (Version 2)
Quarter: 2015Q4

REPORT INFORMATION
  Report Type: Report from Study
  Country: BR (occurrence: BR)
  Receive Date: 20151001
  Receipt Date: 20151004
  Transmission Date: 20160304
  Serious: Yes (Disabling, Other)
  Sender: FDA-Public Use
  Company Number: BR-ASTRAZENECA-2015SE83041

PATIENT
  Age: 944 Month
  Sex: Male
  Weight: 67 kg

DRUGS (4)
  1. SINVALIP [Concomitant]
     Indication: STENT PLACEMENT
     Dosage: DAILY
     Route: 048
     Dates: start: 20150314
  2. ATENOLOL. [Suspect]
     Active Substance: ATENOLOL
     Indication: STENT PLACEMENT
     Route: 048
     Dates: start: 20150314
  3. ARADOIS [Concomitant]
     Active Substance: LOSARTAN POTASSIUM
     Indication: STENT PLACEMENT
     Dosage: DAILY
     Route: 048
     Dates: start: 20150314
  4. BRILINTA [Suspect]
     Active Substance: TICAGRELOR
     Indication: STENT PLACEMENT
     Route: 048
     Dates: start: 20150314

REACTIONS (1)
  - Renal infarct [Recovering/Resolving]

NARRATIVE: CASE EVENT DATE: 201504
